FAERS Safety Report 16230292 (Version 1)
Quarter: 2019Q2

REPORT INFORMATION
  Report Type: Spontaneous
  Country: US (occurrence: US)
  Receive Date: 20190319
  Receipt Date: 20190319
  Transmission Date: 20190711
  Serious: Yes (Other)
  Sender: FDA-Public Use
  Company Number: None

PATIENT
  Age: 75 Year
  Sex: Male
  Weight: 122.47 kg

DRUGS (9)
  1. AMIODARONE HCL [Suspect]
     Active Substance: AMIODARONE HYDROCHLORIDE
     Indication: ATRIAL FIBRILLATION
     Dosage: ?          QUANTITY:200 MG MILLIGRAM(S);?
     Route: 048
     Dates: start: 20181031
  2. METFORMIN [Concomitant]
     Active Substance: METFORMIN HYDROCHLORIDE
  3. COQ10 [Concomitant]
     Active Substance: UBIDECARENONE
  4. ALLERGY PILLS [Concomitant]
     Active Substance: UNSPECIFIED INGREDIENT
  5. ASPIRIN. [Concomitant]
     Active Substance: ASPIRIN
  6. TURMERIC [Concomitant]
     Active Substance: HERBALS\TURMERIC
  7. MULTIVITAMS [Concomitant]
  8. ELIQUIS [Concomitant]
     Active Substance: APIXABAN
  9. LISINOPRIL. [Concomitant]
     Active Substance: LISINOPRIL

REACTIONS (6)
  - Speech disorder [None]
  - Hiccups [None]
  - Muscle spasms [None]
  - Dyspepsia [None]
  - Diaphragm muscle weakness [None]
  - Gastrooesophageal reflux disease [None]

NARRATIVE: CASE EVENT DATE: 20190106
